FAERS Safety Report 5851191-7 (Version None)
Quarter: 2008Q3

REPORT INFORMATION
  Report Type: 
  Country: None (occurrence: None)
  Receive Date: 20080731
  Receipt Date: 20080512
  Transmission Date: 20090109
  Serious: No
  Sender: FDA-Public Use
  Company Number: US200804004292

PATIENT
  Sex: Female

DRUGS (2)
  1. BYETTA [Suspect]
     Dosage: 5 UG, SUBCUTANEOUS ; SUBCUTANEOUS
     Route: 058
     Dates: start: 20061001, end: 20061201
  2. BYETTA [Suspect]
     Dosage: 5 UG, SUBCUTANEOUS ; SUBCUTANEOUS
     Route: 058
     Dates: start: 20080415, end: 20080429

REACTIONS (2)
  - SWELLING FACE [None]
  - URTICARIA [None]
